FAERS Safety Report 5678074-X (Version None)
Quarter: 2008Q1

REPORT INFORMATION
  Report Type: 
  Country: None (occurrence: None)
  Receive Date: 20080319
  Receipt Date: 20080306
  Transmission Date: 20080703
  Serious: Yes (Death)
  Sender: FDA-Public Use
  Company Number: RB-0140-2008

PATIENT
  Age: 45 Year
  Sex: Male

DRUGS (7)
  1. SUBUTEX [Suspect]
     Indication: DRUG USE FOR UNKNOWN INDICATION
     Dosage: 24 MG
  2. BUPRENORPHINE HCL [Suspect]
     Dosage: 16 MG
     Dates: start: 20080110
  3. VIDEX [Concomitant]
  4. EPIVIR [Concomitant]
  5. ZERIT [Concomitant]
  6. EQUANIL [Concomitant]
  7. EFFEXOR [Concomitant]

REACTIONS (4)
  - ANXIETY [None]
  - COMPLETED SUICIDE [None]
  - HYPERCAPNIA [None]
  - WITHDRAWAL SYNDROME [None]
